FAERS Safety Report 16799674 (Version 2)
Quarter: 2019Q4

REPORT INFORMATION
  Report Type: Report from Study
  Country: BE (occurrence: BE)
  Receive Date: 20190912
  Receipt Date: 20191112
  Transmission Date: 20200122
  Serious: Yes (Hospitalization, Other)
  Sender: FDA-Public Use
  Company Number: BE-ASPEN-GLO2019BE009427

PATIENT
  Sex: Female
  Weight: 66 kg

DRUGS (9)
  1. REVLIMID [Suspect]
     Active Substance: LENALIDOMIDE
     Dosage: 525 MG, 1 DOSE 28 DAYS. 25 MG
     Route: 048
     Dates: start: 20180704, end: 20180918
  2. DEXAMETHASONE. [Suspect]
     Active Substance: DEXAMETHASONE
     Dosage: 40 MG, WEEKLY
     Route: 048
     Dates: start: 20181017
  3. VELCADE [Suspect]
     Active Substance: BORTEZOMIB
     Indication: PLASMA CELL MYELOMA
     Dosage: UNK
     Route: 065
  4. REVLIMID [Suspect]
     Active Substance: LENALIDOMIDE
     Indication: PLASMA CELL MYELOMA
     Dosage: 525 MG, 1 DOSE 28 DAYS
     Route: 048
     Dates: start: 20181017
  5. REVLIMID [Suspect]
     Active Substance: LENALIDOMIDE
     Dosage: 420 MG, 1 DOSE 28 DAYS. 20 MILLIGRAM
     Route: 048
     Dates: start: 20181017, end: 20181106
  6. REVLIMID [Suspect]
     Active Substance: LENALIDOMIDE
     Dosage: 25 MG, 1 DOSE 8 HOURS. 75 MG
     Route: 048
     Dates: start: 20180828, end: 20180917
  7. PAMIDRONATE [Concomitant]
     Active Substance: PAMIDRONATE DISODIUM
     Indication: PLASMA CELL MYELOMA
     Route: 065
  8. ASAFLOW [Concomitant]
     Active Substance: ASPIRIN
     Indication: PRODUCT USED FOR UNKNOWN INDICATION
     Dosage: 80 MG, TID
     Route: 065
     Dates: start: 20180709
  9. DEXAMETHASONE. [Suspect]
     Active Substance: DEXAMETHASONE
     Indication: PLASMA CELL MYELOMA
     Dosage: 40 MILLIGRAM, WEEKLY
     Route: 048
     Dates: start: 20180704, end: 20180918

REACTIONS (2)
  - Urosepsis [Recovered/Resolved]
  - Deep vein thrombosis [Recovered/Resolved]

NARRATIVE: CASE EVENT DATE: 20180920
